FAERS Safety Report 8622519 (Version 7)
Quarter: 2013Q3

REPORT INFORMATION
  Report Type: Report from Study
  Country: US (occurrence: US)
  Receive Date: 20120619
  Receipt Date: 20130702
  Transmission Date: 20140515
  Serious: Yes (Hospitalization, Other)
  Sender: FDA-Public Use
  Company Number: US-TEVA-342881USA

PATIENT
  Age: 57 Year
  Sex: Male

DRUGS (20)
  1. FLUOROURACIL [Suspect]
     Indication: NEOPLASM
     Dosage: OVER DAYS 1-3 AND 15-17 OF EACH 28 DAY CYCLE
     Route: 042
     Dates: start: 20120510, end: 20120512
  2. FLUOROURACIL [Suspect]
     Dosage: OVER DAYS 1-3 AND 15-17 OF EACH 28 DAY CYCLS
     Route: 042
     Dates: start: 20120607
  3. FOLINIC ACID [Suspect]
     Indication: NEOPLASM
     Dosage: ON DAYS 1 AND DAY 15
     Route: 042
     Dates: start: 20120510, end: 20120510
  4. ABT-888 (NOT ADMINISTERED) (VELIPARIB) [Suspect]
     Indication: NEOPLASM
  5. IRINOTECAN [Suspect]
     Indication: NEOPLASM
     Dosage: ON DAYS 1 AND DAY 15 (150 MG/M2
     Route: 042
     Dates: start: 20120510, end: 20120510
  6. IRINOTECAN [Suspect]
     Dosage: ON DAYS 1 AND DAY 15 (180 MG/M2)
     Route: 042
     Dates: start: 20120607
  7. ALDACTONE [Concomitant]
     Indication: HYPERTENSION
     Dosage: 75 MILLIGRAM DAILY;
     Route: 042
     Dates: start: 20111028
  8. LASIX [Concomitant]
     Indication: HYPERTENSION
     Dosage: 20 MILLIGRAM DAILY;
     Dates: start: 20111028
  9. K-DUR [Concomitant]
     Indication: ELECTROLYTE SUBSTITUTION THERAPY
     Dosage: 20 MILLIEQUIVALENTS DAILY; WITH ALDACTONE FOR ELECTROLYTE REPLACEMENT
     Dates: start: 20111028
  10. DALTEPARIN [Concomitant]
     Indication: PULMONARY EMBOLISM
     Dosage: 15000 UNITS
     Dates: start: 201109
  11. LOPERAMIDE [Concomitant]
     Indication: DIARRHOEA
     Dosage: AS REQUIRED
     Dates: start: 20120510
  12. VICODIN [Concomitant]
     Indication: ABDOMINAL PAIN
     Dosage: 1 TAB AS REQUIRED
     Dates: start: 20120510
  13. REGLAN [Concomitant]
     Indication: NAUSEA
     Dosage: AS REQUIRED
     Dates: start: 20120517
  14. REGLAN [Concomitant]
     Indication: VOMITING
  15. DECADRON [Concomitant]
     Indication: NAUSEA
     Dosage: AS REQUIRED
     Dates: start: 20120517
  16. DECADRON [Concomitant]
     Indication: VOMITING
  17. DEXAMETHASONE [Concomitant]
     Indication: CHEMOTHERAPY
     Dates: start: 20120510, end: 20120621
  18. FAMOTIDINE [Concomitant]
     Indication: CHEMOTHERAPY
     Dates: start: 20120310, end: 20120621
  19. ONDANSETRON [Concomitant]
     Indication: CHEMOTHERAPY
     Dosage: ONCE
     Dates: start: 20120510, end: 20120621
  20. ATROPINE [Concomitant]
     Indication: CHEMOTHERAPY
     Dosage: ONCE
     Dates: start: 20120510, end: 20120621

REACTIONS (1)
  - Intestinal obstruction [Recovered/Resolved]
